FAERS Safety Report 4545075-4 (Version None)
Quarter: 2004Q4

REPORT INFORMATION
  Report Type: 
  Country: None (occurrence: None)
  Receive Date: 20041222
  Receipt Date: 20040628
  Transmission Date: 20050328
  Serious: Yes (Life-Threatening, Hospitalization, Congenital Anomaly)
  Sender: FDA-Public Use
  Company Number: US_0406103899

PATIENT
  Age: 0 Year
  Weight: 5 kg

DRUGS (1)
  1. HUMALOG [Suspect]

REACTIONS (6)
  - ADENOIDAL HYPERTROPHY [None]
  - DYSPNOEA [None]
  - LARGE FOR DATES BABY [None]
  - NEONATAL RESPIRATORY DISTRESS SYNDROME [None]
  - PREMATURE BABY [None]
  - UPPER LIMB FRACTURE [None]
